FAERS Safety Report 18668665 (Version 1)
Quarter: 2020Q4

REPORT INFORMATION
  Report Type: Spontaneous
  Country: FR (occurrence: FR)
  Receive Date: 20201228
  Receipt Date: 20201228
  Transmission Date: 20210114
  Serious: Yes (Other)
  Sender: FDA-Public Use
  Company Number: FR-GLAXOSMITHKLINE-FR2020EME254276

PATIENT
  Age: 28 Year
  Sex: Female

DRUGS (1)
  1. LAMICTAL [Suspect]
     Active Substance: LAMOTRIGINE
     Indication: PRODUCT USED FOR UNKNOWN INDICATION
     Dosage: 25 MG
     Dates: start: 20201215

REACTIONS (6)
  - Abnormal behaviour [Unknown]
  - Visual impairment [Unknown]
  - Loss of consciousness [Unknown]
  - Muscle contractions involuntary [Unknown]
  - Palpitations [Unknown]
  - Product complaint [Unknown]

NARRATIVE: CASE EVENT DATE: 20201215
